FAERS Safety Report 23632027 (Version 1)
Quarter: 2024Q1

REPORT INFORMATION
  Report Type: Spontaneous
  Country: US (occurrence: None)
  Receive Date: 20240313
  Receipt Date: 20240313
  Transmission Date: 20240410
  Serious: Yes (Disabling)
  Sender: FDA-Public Use
  Company Number: None

PATIENT
  Age: 47 Year
  Sex: 0
  Weight: 94.5 kg

DRUGS (1)
  1. XYZAL ALLERGY 24HR [Suspect]
     Active Substance: LEVOCETIRIZINE DIHYDROCHLORIDE
     Indication: Mast cell activation syndrome
     Dosage: OTHER QUANTITY : 1 TABLET(S);?FREQUENCY : DAILY;?
     Route: 048
     Dates: start: 20240221, end: 20240312

REACTIONS (9)
  - Oropharyngeal pain [None]
  - Sensation of foreign body [None]
  - Odynophagia [None]
  - Ear discomfort [None]
  - Tinnitus [None]
  - Deafness unilateral [None]
  - Inflammation [None]
  - Swelling [None]
  - Neck pain [None]

NARRATIVE: CASE EVENT DATE: 20240222
